FAERS Safety Report 23855803 (Version 1)
Quarter: 2024Q2

REPORT INFORMATION
  Report Type: Spontaneous
  Country: CN (occurrence: CN)
  Receive Date: 20240515
  Receipt Date: 20240515
  Transmission Date: 20240715
  Serious: Yes (Hospitalization, Disabling)
  Sender: FDA-Public Use
  Company Number: CN-002147023-NVSC2024CN099555

PATIENT
  Age: 70 Year
  Sex: Male

DRUGS (2)
  1. PAZOPANIB [Suspect]
     Active Substance: PAZOPANIB
     Indication: Neoplasm malignant
     Dosage: 600.000 MG, QD
     Route: 048
     Dates: start: 20240428, end: 20240505
  2. PAZOPANIB [Suspect]
     Active Substance: PAZOPANIB
     Indication: Targeted cancer therapy

REACTIONS (6)
  - Haematuria [Not Recovered/Not Resolved]
  - Dysuria [Not Recovered/Not Resolved]
  - Urinary bladder haemorrhage [Unknown]
  - Hypotension [Unknown]
  - Blood pressure systolic decreased [Unknown]
  - Blood pressure diastolic decreased [Unknown]

NARRATIVE: CASE EVENT DATE: 20240505
